FAERS Safety Report 8007026-X (Version None)
Quarter: 2011Q4

REPORT INFORMATION
  Report Type: 
  Country: None (occurrence: None)
  Receive Date: 20111227
  Receipt Date: 20111216
  Transmission Date: 20120403
  Serious: Yes (Hospitalization)
  Sender: FDA-Public Use
  Company Number: JP-BRISTOL-MYERS SQUIBB COMPANY-16311953

PATIENT
  Age: 50 Year
  Sex: Male
  Weight: 93 kg

DRUGS (8)
  1. TRIHEXYPHENIDYL HCL [Suspect]
     Indication: HALLUCINATION, AUDITORY
     Route: 048
     Dates: start: 20111214, end: 20111216
  2. TRIHEXYPHENIDYL HCL [Suspect]
     Indication: HALLUCINATION
     Route: 048
     Dates: start: 20111214, end: 20111216
  3. EVAMYL [Concomitant]
     Dates: start: 20111212
  4. ESTAZOLAM [Concomitant]
     Dates: end: 20111205
  5. HALOPERIDOL [Suspect]
     Indication: HALLUCINATION, AUDITORY
     Dosage: ALSO 2 MG
     Route: 048
     Dates: start: 20111214, end: 20111216
  6. ABILIFY [Suspect]
     Indication: SCHIZOPHRENIA
     Route: 048
     Dates: start: 20111207, end: 20111214
  7. HALOPERIDOL [Suspect]
     Indication: HALLUCINATION
     Dosage: ALSO 2 MG
     Route: 048
     Dates: start: 20111214, end: 20111216
  8. BROTIZOLAM [Suspect]
     Indication: INSOMNIA
     Dosage: 06-11DEC11.14-15DEC11.
     Route: 048
     Dates: start: 20111206, end: 20111215

REACTIONS (2)
  - HALLUCINATION [None]
  - INSOMNIA [None]
